FAERS Safety Report 16967208 (Version 1)
Quarter: 2019Q4

REPORT INFORMATION
  Report Type: Spontaneous
  Country: US (occurrence: US)
  Receive Date: 20191028
  Receipt Date: 20191028
  Transmission Date: 20200122
  Serious: No
  Sender: FDA-Public Use
  Company Number: US-IBSA PHARMA-TIR-2019-0505

PATIENT
  Sex: Female

DRUGS (3)
  1. TIROSINT [Suspect]
     Active Substance: LEVOTHYROXINE SODIUM
     Indication: HYPOTHYROIDISM
     Dosage: 25MCG DAILY
     Route: 048
     Dates: start: 201901, end: 201903
  2. COLCRYS [Concomitant]
     Active Substance: COLCHICINE
     Indication: CHONDROCALCINOSIS PYROPHOSPHATE
     Dosage: 0.6MCG
  3. TIROSINT [Suspect]
     Active Substance: LEVOTHYROXINE SODIUM
     Indication: HYPOTHYROIDISM
     Dosage: 50MCG DAILY
     Route: 048
     Dates: start: 201903, end: 201905

REACTIONS (14)
  - Onychoclasis [Recovering/Resolving]
  - Blood thyroid stimulating hormone abnormal [Unknown]
  - Toxicity to various agents [Recovering/Resolving]
  - Headache [Recovering/Resolving]
  - Palpitations [Recovering/Resolving]
  - Inflammation [Recovering/Resolving]
  - Dehydration [Recovering/Resolving]
  - Alopecia [Recovering/Resolving]
  - Feeling abnormal [Recovering/Resolving]
  - Myalgia [Recovering/Resolving]
  - Laboratory test abnormal [Recovering/Resolving]
  - Nausea [Recovering/Resolving]
  - Muscle spasms [Recovering/Resolving]
  - Diarrhoea [Recovering/Resolving]

NARRATIVE: CASE EVENT DATE: 2019
